FAERS Safety Report 18566645 (Version 1)
Quarter: 2020Q4

REPORT INFORMATION
  Report Type: Spontaneous
  Country: US (occurrence: US)
  Receive Date: 20201201
  Receipt Date: 20201201
  Transmission Date: 20210114
  Serious: No
  Sender: FDA-Public Use
  Company Number: US-BAYER-2020-258531

PATIENT
  Sex: Male
  Weight: 99.34 kg

DRUGS (5)
  1. ALEVE [Suspect]
     Active Substance: NAPROXEN SODIUM
     Indication: INTERVERTEBRAL DISC OPERATION
  2. ATENOLOL. [Concomitant]
     Active Substance: ATENOLOL
     Indication: BLOOD PRESSURE ABNORMAL
  3. ALEVE [Suspect]
     Active Substance: NAPROXEN SODIUM
     Indication: OSTEOARTHRITIS
     Dosage: 1 UNK
  4. CLONIDINE. [Concomitant]
     Active Substance: CLONIDINE
     Indication: BLOOD PRESSURE ABNORMAL
  5. ALEVE [Suspect]
     Active Substance: NAPROXEN SODIUM
     Indication: INFLAMMATION
     Dosage: 2 DF, QD

REACTIONS (2)
  - Mental disorder [None]
  - Drug ineffective for unapproved indication [Unknown]
